FAERS Safety Report 13394994 (Version 1)
Quarter: 2017Q1

REPORT INFORMATION
  Report Type: Spontaneous
  Country: None (occurrence: US)
  Receive Date: 20170331
  Receipt Date: 20170331
  Transmission Date: 20170429
  Serious: Yes (Hospitalization)
  Sender: FDA-Public Use
  Company Number: None

PATIENT
  Age: 72 Year
  Sex: Female
  Weight: 91.8 kg

DRUGS (1)
  1. GEMCITABINE HYDROCHLORIDE. [Suspect]
     Active Substance: GEMCITABINE HYDROCHLORIDE
     Dosage: PATIENT ONLY RECEIVED ONE TX IN CYCLE 5
     Dates: end: 20170309

REACTIONS (8)
  - Renal failure [None]
  - Fluid overload [None]
  - Atrial fibrillation [None]
  - Pleural effusion [None]
  - Peripheral swelling [None]
  - Pericardial effusion [None]
  - Acute respiratory failure [None]
  - Deep vein thrombosis [None]

NARRATIVE: CASE EVENT DATE: 20170315
